FAERS Safety Report 7911501-3 (Version None)
Quarter: 2011Q4

REPORT INFORMATION
  Report Type: 
  Country: None (occurrence: None)
  Receive Date: 20111114
  Receipt Date: 20111031
  Transmission Date: 20120403
  Serious: Yes (Other)
  Sender: FDA-Public Use
  Company Number: US-MYLANLABS-2011S1022868

PATIENT
  Age: 53 Year
  Sex: Female

DRUGS (5)
  1. HYDROXYCHLOROQUINE SULFATE [Concomitant]
     Indication: CUTANEOUS LUPUS ERYTHEMATOSUS
     Route: 065
  2. PREDNISONE [Concomitant]
     Indication: CUTANEOUS LUPUS ERYTHEMATOSUS
     Route: 065
  3. MYCOPHENOLATE MOFETIL [Suspect]
     Dosage: 3000 MG/DAY
     Route: 065
  4. PIMECROLIMUS [Concomitant]
     Indication: CUTANEOUS LUPUS ERYTHEMATOSUS
     Route: 061
  5. MYCOPHENOLATE MOFETIL [Suspect]
     Indication: CUTANEOUS LUPUS ERYTHEMATOSUS
     Dosage: 500 MG/DAY; THEN INCREASED TO 3000 MG/DAY
     Route: 065

REACTIONS (2)
  - LUPUS NEPHRITIS [None]
  - HERPES ZOSTER [None]
